FAERS Safety Report 10249461 (Version 1)
Quarter: 2014Q2

REPORT INFORMATION
  Report Type: Spontaneous
  Country: US (occurrence: None)
  Receive Date: 20140516
  Receipt Date: 20140516
  Transmission Date: 20141212
  Serious: Yes (Other)
  Sender: FDA-Public Use
  Company Number: E2007-01603-SPO-US

PATIENT
  Age: 41 Year
  Sex: Female
  Weight: 107 kg

DRUGS (1)
  1. FYCOMPA [Suspect]
     Indication: EPILEPSY
     Route: 048
     Dates: start: 20140212, end: 20140217

REACTIONS (1)
  - Violence-related symptom [None]
